FAERS Safety Report 9615429 (Version 1)
Quarter: 2013Q4

REPORT INFORMATION
  Report Type: Spontaneous
  Country: US (occurrence: None)
  Receive Date: 20131010
  Receipt Date: 20131010
  Transmission Date: 20140711
  Serious: Yes (Other)
  Sender: FDA-Public Use
  Company Number: None

PATIENT
  Age: 62 Year
  Sex: Male
  Weight: 113.4 kg

DRUGS (1)
  1. GAMUNEX-C [Suspect]
     Indication: POLYNEUROPATHY
     Route: 042

REACTIONS (1)
  - Urticaria [None]
